FAERS Safety Report 20882734 (Version 1)
Quarter: 2022Q2

REPORT INFORMATION
  Report Type: Spontaneous
  Country: SI (occurrence: None)
  Receive Date: 20220527
  Receipt Date: 20220527
  Transmission Date: 20220721
  Serious: Yes (Hospitalization, Other)
  Sender: FDA-Public Use
  Company Number: SI-MICRO LABS LIMITED-ML2022-02282

PATIENT
  Age: 51 Year
  Sex: Male

DRUGS (1)
  1. TRANEXAMIC ACID [Suspect]
     Active Substance: TRANEXAMIC ACID
     Indication: Spinal anaesthesia
     Dosage: INJECTED 3.5 ML (350 MG) OF TXA INTRATHECALLY
     Route: 037

REACTIONS (19)
  - Cardiotoxicity [Unknown]
  - Neurotoxicity [Unknown]
  - Pain [Unknown]
  - Ventricular extrasystoles [Unknown]
  - Encephalopathy [Unknown]
  - Hypertension [Unknown]
  - Coma [Unknown]
  - Bell^s palsy [Recovered/Resolved]
  - Hyporeflexia [Unknown]
  - Dysphonia [Unknown]
  - Nystagmus [Unknown]
  - Paresis [Recovered/Resolved]
  - Urinary retention [Unknown]
  - Eye movement disorder [Recovering/Resolving]
  - Cauda equina syndrome [Unknown]
  - Autonomic nervous system imbalance [Unknown]
  - Myoclonus [Unknown]
  - Ventricular arrhythmia [Unknown]
  - Medication error [Unknown]
